FAERS Safety Report 20734586 (Version 2)
Quarter: 2022Q2

REPORT INFORMATION
  Report Type: Spontaneous
  Country: US (occurrence: US)
  Receive Date: 20220421
  Receipt Date: 20220429
  Transmission Date: 20220721
  Serious: No
  Sender: FDA-Public Use
  Company Number: US-AIMMUNE THERAPEUTICS, INC.-2022AIMT00320

PATIENT

DRUGS (1)
  1. PALFORZIA [Suspect]
     Active Substance: PEANUT
     Indication: Food allergy
     Dosage: IDE (1 MG), ONCE
     Route: 048
     Dates: start: 20220418, end: 20220418

REACTIONS (4)
  - Refusal of treatment by patient [Unknown]
  - Intentional product misuse [Unknown]
  - No adverse event [Unknown]
  - Drug titration error [Unknown]

NARRATIVE: CASE EVENT DATE: 20220418
